FAERS Safety Report 9721446 (Version 4)
Quarter: 2014Q1

REPORT INFORMATION
  Report Type: Spontaneous
  Country: JP (occurrence: JP)
  Receive Date: 20131129
  Receipt Date: 20140122
  Transmission Date: 20141002
  Serious: Yes (Other)
  Sender: FDA-Public Use
  Company Number: JP-ASTRAZENECA-2013SE83119

PATIENT
  Age: 90 Year
  Sex: Female
  Weight: 40 kg

DRUGS (13)
  1. NEXIUM [Suspect]
     Indication: GASTROOESOPHAGEAL REFLUX DISEASE
     Route: 048
     Dates: start: 20120829, end: 20131026
  2. ZOSYN [Concomitant]
     Indication: URINARY TRACT INFECTION
     Route: 041
     Dates: start: 20131025, end: 20131028
  3. AMLODIPINE OD [Concomitant]
     Indication: HYPERTENSION
     Route: 048
     Dates: start: 20130115, end: 20131203
  4. LIVALO [Concomitant]
     Indication: HYPERLIPIDAEMIA
     Route: 048
  5. BAYASPIRIN [Concomitant]
     Indication: ANGINA PECTORIS
     Route: 048
  6. ALLOZYM [Concomitant]
     Indication: HYPERURICAEMIA
     Route: 048
  7. ITOROL [Concomitant]
     Indication: ANGINA PECTORIS
     Route: 048
  8. ARTIST [Concomitant]
     Indication: CARDIAC FAILURE CHRONIC
     Route: 048
  9. ALLOID G [Concomitant]
     Indication: GASTRIC ULCER
     Route: 048
  10. VASOLAN [Concomitant]
     Indication: SICK SINUS SYNDROME
     Route: 048
  11. MUCOSTA [Concomitant]
     Indication: GASTRIC ULCER
     Route: 048
  12. GASMOTIN [Concomitant]
     Indication: GASTRITIS
     Route: 048
  13. FESIN [Concomitant]
     Indication: IRON DEFICIENCY ANAEMIA
     Route: 042
     Dates: start: 20131018, end: 20131029

REACTIONS (2)
  - Decreased appetite [Unknown]
  - Hyponatraemia [Recovered/Resolved]
